FAERS Safety Report 9405175 (Version 1)
Quarter: 2013Q3

REPORT INFORMATION
  Report Type: Spontaneous
  Country: US (occurrence: None)
  Receive Date: 20130701
  Receipt Date: 20130701
  Transmission Date: 20140515
  Serious: Yes (Hospitalization)
  Sender: FDA-Public Use
  Company Number: 0239746

PATIENT
  Age: 60 Year
  Sex: Male

DRUGS (3)
  1. TACHOSIL [Suspect]
     Indication: PROPHYLAXIS
     Dosage: 2 SHEETS OF REGULAR SIZE
     Dates: start: 20130326
  2. LOXONIN (LOXOPROFEN SODIUM) [Concomitant]
  3. MUCOSTA (REBAMIPIDE) [Concomitant]

REACTIONS (3)
  - Abdominal abscess [None]
  - Anaemia [None]
  - Hepatic function abnormal [None]
